FAERS Safety Report 14674991 (Version 1)
Quarter: 2018Q1

REPORT INFORMATION
  Report Type: Spontaneous
  Country: CA (occurrence: CA)
  Receive Date: 20180323
  Receipt Date: 20180323
  Transmission Date: 20180509
  Serious: Yes (Other)
  Sender: FDA-Public Use
  Company Number: CA-BAYER-2018-051831

PATIENT
  Age: 31 Year
  Sex: Female
  Weight: 86.18 kg

DRUGS (2)
  1. MIRENA [Suspect]
     Active Substance: LEVONORGESTREL
  2. MIRENA [Suspect]
     Active Substance: LEVONORGESTREL
     Dosage: 20 MCG/24HR, CONT
     Route: 015

REACTIONS (6)
  - Depression [Unknown]
  - Back pain [Unknown]
  - Alopecia [Unknown]
  - Hypoaesthesia [Unknown]
  - Libido decreased [Unknown]
  - Mood swings [Unknown]
